FAERS Safety Report 24091800 (Version 1)
Quarter: 2024Q3

REPORT INFORMATION
  Report Type: Report from Study
  Country: FR (occurrence: FR)
  Receive Date: 20240715
  Receipt Date: 20240715
  Transmission Date: 20241016
  Serious: Yes (Other)
  Sender: TAKEDA
  Company Number: FR-TAKEDA-2024TUS070119

PATIENT
  Age: 65 Year
  Sex: Male

DRUGS (1)
  1. BRIGATINIB [Suspect]
     Active Substance: BRIGATINIB
     Indication: Non-small cell lung cancer
     Dosage: UNK
     Route: 065

REACTIONS (20)
  - Erectile dysfunction [Unknown]
  - Nausea [Unknown]
  - Haemorrhage [Unknown]
  - Pustule [Unknown]
  - Plicated tongue [Unknown]
  - Paraesthesia oral [Unknown]
  - Epistaxis [Unknown]
  - Constipation [Unknown]
  - Alopecia [Unknown]
  - Weight decreased [Unknown]
  - Loss of libido [Unknown]
  - Blood creatine decreased [Unknown]
  - Bite [Unknown]
  - Depression [Unknown]
  - Decreased appetite [Unknown]
  - Fatigue [Unknown]
  - Periorbital swelling [Unknown]
  - Dyspepsia [Unknown]
  - Gastrooesophageal reflux disease [Unknown]
  - pH urine decreased [Unknown]
